FAERS Safety Report 18132503 (Version 1)
Quarter: 2020Q3

REPORT INFORMATION
  Report Type: Spontaneous
  Country: FR (occurrence: FR)
  Receive Date: 20200811
  Receipt Date: 20200811
  Transmission Date: 20201103
  Serious: Yes (Hospitalization, Other)
  Sender: FDA-Public Use
  Company Number: FR-AUROBINDO-AUR-APL-2015-07342

PATIENT
  Age: 50 Year
  Sex: Male

DRUGS (6)
  1. DACLATASVIR. [Interacting]
     Active Substance: DACLATASVIR
     Indication: CHRONIC HEPATITIS C
     Dosage: 60 MILLIGRAM
     Route: 065
  2. PROPANOLOL (PROPRANOLOL) [Interacting]
     Active Substance: PROPRANOLOL HYDROCHLORIDE
     Dosage: 400 MILLIGRAM
     Route: 065
  3. SOFOSBUVIR [Suspect]
     Active Substance: SOFOSBUVIR
     Indication: CHRONIC HEPATITIS C
     Dosage: 400 MILLIGRAM
     Route: 065
  4. AMIODARONE 200MG [Suspect]
     Active Substance: AMIODARONE
     Indication: PRODUCT USED FOR UNKNOWN INDICATION
     Dosage: 200 MILLIGRAM
     Route: 065
  5. FLUINDIONE [Concomitant]
     Active Substance: FLUINDIONE
     Indication: PRODUCT USED FOR UNKNOWN INDICATION
     Dosage: UNK
     Route: 065
  6. PROPANOLOL (PROPRANOLOL) [Interacting]
     Active Substance: PROPRANOLOL HYDROCHLORIDE
     Indication: PRODUCT USED FOR UNKNOWN INDICATION
     Dosage: 40 MILLIGRAM
     Route: 065

REACTIONS (4)
  - Sinus node dysfunction [Recovered/Resolved]
  - Syncope [Recovered/Resolved]
  - Bradycardia [Recovered/Resolved]
  - Drug interaction [Recovered/Resolved]
